FAERS Safety Report 7401994-2 (Version None)
Quarter: 2011Q2

REPORT INFORMATION
  Report Type: 
  Country: None (occurrence: None)
  Receive Date: 20110408
  Receipt Date: 20110401
  Transmission Date: 20111010
  Serious: Yes (Other)
  Sender: FDA-Public Use
  Company Number: GB-PFIZER INC-2011072775

PATIENT
  Age: 30 Year
  Sex: Female

DRUGS (1)
  1. LYRICA [Suspect]
     Indication: GENERALISED ANXIETY DISORDER
     Dosage: 75 MG DAILY

REACTIONS (8)
  - ANXIETY [None]
  - INCORRECT DOSE ADMINISTERED [None]
  - SELF-INJURIOUS IDEATION [None]
  - MUSCLE TWITCHING [None]
  - SLEEP DISORDER [None]
  - DRUG INEFFECTIVE [None]
  - WITHDRAWAL SYNDROME [None]
  - WRONG TECHNIQUE IN DRUG USAGE PROCESS [None]
